FAERS Safety Report 15147919 (Version 2)
Quarter: 2018Q3

REPORT INFORMATION
  Report Type: Other
  Country: DE (occurrence: DE)
  Receive Date: 20180716
  Receipt Date: 20180820
  Transmission Date: 20181010
  Serious: Yes (Other)
  Sender: FDA-Public Use
  Company Number: DE-LUPIN PHARMACEUTICALS INC.-2018-04976

PATIENT
  Age: 54 Year
  Sex: Female

DRUGS (4)
  1. VITAMIN D3 [Concomitant]
     Active Substance: CHOLECALCIFEROL
     Indication: PRODUCT USED FOR UNKNOWN INDICATION
     Dosage: UNK (HIGH DOSAGE)
     Route: 065
  2. PRAVASTATIN. [Suspect]
     Active Substance: PRAVASTATIN
     Indication: BLOOD CHOLESTEROL INCREASED
     Dosage: 1 DF, EVERY SECOND EVENING
     Route: 048
     Dates: end: 201803
  3. SIMVASTATIN. [Suspect]
     Active Substance: SIMVASTATIN
     Indication: BLOOD CHOLESTEROL INCREASED
     Dosage: 60 MG, QD
     Route: 065
     Dates: end: 201712
  4. CANDESARTAN HEUMANN [Concomitant]
     Active Substance: CANDESARTAN CILEXETIL
     Indication: PRODUCT USED FOR UNKNOWN INDICATION
     Dosage: UNK
     Route: 065

REACTIONS (25)
  - Blood pressure increased [Unknown]
  - Increased appetite [Recovered/Resolved]
  - Nausea [Unknown]
  - Muscular weakness [Unknown]
  - Arthralgia [Unknown]
  - Joint warmth [Unknown]
  - Dyspnoea [Recovered/Resolved]
  - Musculoskeletal stiffness [Unknown]
  - Insomnia [Unknown]
  - Food craving [Unknown]
  - Thirst [Recovered/Resolved]
  - Weight decreased [Unknown]
  - Feeling hot [Unknown]
  - Nerve compression [Unknown]
  - Disturbance in attention [Unknown]
  - Muscle twitching [Not Recovered/Not Resolved]
  - Aphasia [Unknown]
  - Infection [Unknown]
  - Pain [Unknown]
  - Gait disturbance [Unknown]
  - Osteitis [Unknown]
  - Myalgia [Unknown]
  - Inflammation [Unknown]
  - Fall [Recovered/Resolved]
  - Feeling cold [Unknown]

NARRATIVE: CASE EVENT DATE: 201702
